FAERS Safety Report 5636672-3 (Version None)
Quarter: 2008Q1

REPORT INFORMATION
  Report Type: 
  Country: None (occurrence: None)
  Receive Date: 20080225
  Receipt Date: 20080215
  Transmission Date: 20080703
  Serious: Yes (Other)
  Sender: FDA-Public Use
  Company Number: US-ROCHE-547842

PATIENT
  Age: 9 Year
  Sex: Female

DRUGS (1)
  1. TAMIFLU [Suspect]
     Indication: DRUG USE FOR UNKNOWN INDICATION
     Route: 065
     Dates: start: 20080213, end: 20080213

REACTIONS (2)
  - DELIRIUM [None]
  - SUICIDAL IDEATION [None]
